FAERS Safety Report 6379468-X (Version None)
Quarter: 2009Q3

REPORT INFORMATION
  Report Type: 
  Country: None (occurrence: None)
  Receive Date: 20090928
  Receipt Date: 20090918
  Transmission Date: 20100115
  Serious: Yes (Hospitalization)
  Sender: FDA-Public Use
  Company Number: B0594100A

PATIENT
  Age: 36 Year
  Sex: Female

DRUGS (2)
  1. WELLVONE [Suspect]
     Route: 048
     Dates: start: 20090429, end: 20090519
  2. TRUVADA [Suspect]
     Route: 048
     Dates: start: 20090415, end: 20090525

REACTIONS (1)
  - RENAL FAILURE ACUTE [None]
